FAERS Safety Report 13258725 (Version 2)
Quarter: 2017Q4

REPORT INFORMATION
  Report Type: Spontaneous
  Country: US (occurrence: US)
  Receive Date: 20170222
  Receipt Date: 20171008
  Transmission Date: 20180320
  Serious: No
  Sender: FDA-Public Use
  Company Number: US-B.I. PHARMACEUTICALS,INC./RIDGEFIELD-2017-BI-008781

PATIENT
  Age: 67 Year
  Sex: Female

DRUGS (2)
  1. SPIRIVA [Suspect]
     Active Substance: TIOTROPIUM BROMIDE MONOHYDRATE
     Indication: CHRONIC OBSTRUCTIVE PULMONARY DISEASE
     Dosage: ONCE DAILY;  FORM STRENGTH: 18 MCG; FORMULATION: CAPSULE? ADMINISTRATION CORRECT? YES ?ACTION(S) TAK
     Route: 055
     Dates: start: 20170116
  2. ALBUTEROL. [Concomitant]
     Active Substance: ALBUTEROL
     Indication: PRODUCT USED FOR UNKNOWN INDICATION
     Dosage: AS NEEDED;
     Route: 055

REACTIONS (4)
  - Nasopharyngitis [Recovered/Resolved]
  - Product physical issue [Unknown]
  - Product quality issue [Unknown]
  - Somnolence [Recovered/Resolved]

NARRATIVE: CASE EVENT DATE: 20170206
